FAERS Safety Report 4626368-9 (Version None)
Quarter: 2005Q2

REPORT INFORMATION
  Report Type: 
  Country: None (occurrence: None)
  Receive Date: 20050325
  Receipt Date: 20050114
  Transmission Date: 20051028
  Serious: No
  Sender: FDA-Public Use
  Company Number: USA050188378

PATIENT
  Age: 79 Year
  Sex: Female

DRUGS (3)
  1. FORTEO [Suspect]
     Indication: OSTEOPOROSIS
     Dates: start: 20041114
  2. CALCIUM GLUCONATE [Concomitant]
  3. VITAMIN D [Concomitant]

REACTIONS (3)
  - ABNORMAL FAECES [None]
  - CHANGE OF BOWEL HABIT [None]
  - FAECES HARD [None]
